FAERS Safety Report 13569537 (Version 1)
Quarter: 2017Q2

REPORT INFORMATION
  Report Type: Spontaneous
  Country: CA (occurrence: CA)
  Receive Date: 20170522
  Receipt Date: 20170522
  Transmission Date: 20170830
  Serious: Yes (Death, Other)
  Sender: FDA-Public Use
  Company Number: CA-MYLANLABS-2016M1053473

PATIENT

DRUGS (3)
  1. FONDAPARINUX [Suspect]
     Active Substance: FONDAPARINUX
     Indication: PRODUCT USED FOR UNKNOWN INDICATION
     Dosage: 7.5 MG, QD
  2. HEPARIN [Suspect]
     Active Substance: HEPARIN SODIUM
     Indication: PRODUCT USED FOR UNKNOWN INDICATION
     Dosage: 5000 IU, BID
     Route: 058
  3. FONDAPARINUX [Suspect]
     Active Substance: FONDAPARINUX
     Dosage: 5 MG, BID
     Route: 058

REACTIONS (8)
  - Drug interaction [Unknown]
  - Treatment failure [Unknown]
  - Haemorrhage intracranial [Fatal]
  - Deep vein thrombosis [Unknown]
  - Drug cross-reactivity [Unknown]
  - Heparin-induced thrombocytopenia [Unknown]
  - Hypofibrinogenaemia [Unknown]
  - Pulmonary embolism [Unknown]
